FAERS Safety Report 7081155-X (Version None)
Quarter: 2010Q4

REPORT INFORMATION
  Report Type: 
  Country: None (occurrence: None)
  Receive Date: 20101103
  Receipt Date: 20101026
  Transmission Date: 20110411
  Serious: Yes (Other)
  Sender: FDA-Public Use
  Company Number: B0681564A

PATIENT

DRUGS (1)
  1. ZOVIRAX [Suspect]
     Indication: ENCEPHALITIS HERPES
     Route: 042

REACTIONS (1)
  - DEPRESSED LEVEL OF CONSCIOUSNESS [None]
